FAERS Safety Report 24915279 (Version 2)
Quarter: 2025Q1

REPORT INFORMATION
  Report Type: Report from Study
  Country: CA (occurrence: CA)
  Receive Date: 20250203
  Receipt Date: 20250211
  Transmission Date: 20250409
  Serious: Yes (Other)
  Sender: JOHNSON AND JOHNSON
  Company Number: CA-JNJFOC-20250188541

PATIENT
  Age: 57 Year
  Sex: Male

DRUGS (3)
  1. SIMPONI [Suspect]
     Active Substance: GOLIMUMAB
     Indication: Ankylosing spondylitis
     Route: 058
     Dates: start: 20221219
  2. Apo-mometasone 50mcg nasal [Concomitant]
     Route: 045
  3. Apo-fluticasone HFA 250mcg inhalation [Concomitant]

REACTIONS (1)
  - Lower respiratory tract infection [Recovering/Resolving]
